FAERS Safety Report 25410883 (Version 1)
Quarter: 2025Q2

REPORT INFORMATION
  Report Type: Spontaneous
  Country: US (occurrence: US)
  Receive Date: 20250609
  Receipt Date: 20250609
  Transmission Date: 20250717
  Serious: Yes (Other)
  Sender: BRISTOL-MYERS SQUIBB COMPANY
  Company Number: US-BRISTOL-MYERS SQUIBB COMPANY-2025-078131

PATIENT
  Age: 70 Year
  Sex: Female

DRUGS (4)
  1. KENALOG [Suspect]
     Active Substance: TRIAMCINOLONE ACETONIDE
     Indication: Arthralgia
     Route: 014
  2. KENALOG [Suspect]
     Active Substance: TRIAMCINOLONE ACETONIDE
     Indication: Pain in extremity
  3. LIDOCAINE [Concomitant]
     Active Substance: LIDOCAINE
     Indication: Arthralgia
     Route: 014
  4. LIDOCAINE [Concomitant]
     Active Substance: LIDOCAINE
     Indication: Pain in extremity

REACTIONS (1)
  - Osteonecrosis [Recovered/Resolved]
